FAERS Safety Report 12282188 (Version 1)
Quarter: 2016Q2

REPORT INFORMATION
  Report Type: Spontaneous
  Country: GB (occurrence: GB)
  Receive Date: 20160419
  Receipt Date: 20160419
  Transmission Date: 20160815
  Serious: Yes (Other)
  Sender: FDA-Public Use
  Company Number: GB-WATSON-2016-07349

PATIENT
  Age: 70 Year
  Sex: Male
  Weight: 66.67 kg

DRUGS (3)
  1. ASACOL [Concomitant]
     Active Substance: MESALAMINE
     Indication: PRODUCT USED FOR UNKNOWN INDICATION
     Dosage: UNK, UNKNOWN
     Route: 065
  2. METRONIDAZOLE (UNKNOWN) [Suspect]
     Active Substance: METRONIDAZOLE
     Indication: TOOTH INFECTION
     Dosage: 400 MG, UNKNOWN
     Route: 048
  3. FYBOGEL MEBEVERINE [Concomitant]
     Indication: PRODUCT USED FOR UNKNOWN INDICATION
     Dosage: UNK, UNKNOWN
     Route: 065

REACTIONS (3)
  - Nausea [Recovered/Resolved with Sequelae]
  - Abdominal pain upper [Recovered/Resolved with Sequelae]
  - Malaise [Recovered/Resolved with Sequelae]
